FAERS Safety Report 4485419-5 (Version None)
Quarter: 2004Q4

REPORT INFORMATION
  Report Type: 
  Country: None (occurrence: None)
  Receive Date: 20041025
  Receipt Date: 20041025
  Transmission Date: 20050328
  Serious: Yes (Other)
  Sender: FDA-Public Use
  Company Number: None

PATIENT
  Sex: Female

DRUGS (1)
  1. MINITRAN  0.4/DAY  GENERIC [Suspect]
     Indication: ANGINA PECTORIS
     Dosage: TOPICALLY QD
     Route: 061

REACTIONS (3)
  - BLISTER [None]
  - PHARMACEUTICAL PRODUCT COMPLAINT [None]
  - RASH [None]
